FAERS Safety Report 24437030 (Version 1)
Quarter: 2024Q4

REPORT INFORMATION
  Report Type: Spontaneous
  Country: ES (occurrence: ES)
  Receive Date: 20241015
  Receipt Date: 20241015
  Transmission Date: 20250115
  Serious: Yes (Other)
  Sender: AMERICAN REGENT
  Company Number: ES-AMERICAN REGENT INC-2024003864

PATIENT
  Age: 36 Year
  Sex: Female

DRUGS (1)
  1. FERINJECT [Suspect]
     Active Substance: FERRIC CARBOXYMALTOSE
     Indication: Product used for unknown indication
     Dosage: 1 GM,1 IN 24 HR
     Route: 042
     Dates: start: 20240906, end: 20240908

REACTIONS (2)
  - Iron overload [Unknown]
  - Wrong schedule [Unknown]

NARRATIVE: CASE EVENT DATE: 20240906
